FAERS Safety Report 25952147 (Version 1)
Quarter: 2025Q4

REPORT INFORMATION
  Report Type: Spontaneous
  Country: CA (occurrence: CA)
  Receive Date: 20251023
  Receipt Date: 20251023
  Transmission Date: 20260118
  Serious: Yes (Other)
  Sender: NOVARTIS
  Company Number: CA-SANDOZ-SDZ2025CA077167

PATIENT
  Age: 68 Year
  Sex: Female
  Weight: 107 kg

DRUGS (1)
  1. LETROZOLE [Suspect]
     Active Substance: LETROZOLE
     Indication: Ovarian cancer
     Dosage: 2.5 MG, QD
     Route: 048

REACTIONS (3)
  - Malignant neoplasm progression [Unknown]
  - Ovarian cancer [Unknown]
  - Off label use [Unknown]
